FAERS Safety Report 10369853 (Version 2)
Quarter: 2014Q3

REPORT INFORMATION
  Report Type: Report from Study
  Country: DE (occurrence: DE)
  Receive Date: 20140808
  Receipt Date: 20140905
  Transmission Date: 20150326
  Serious: Yes (Hospitalization)
  Sender: FDA-Public Use
  Company Number: DE-ROCHE-1446856

PATIENT
  Age: 53 Year
  Sex: Female

DRUGS (7)
  1. TOCILIZUMAB [Suspect]
     Active Substance: TOCILIZUMAB
     Indication: RHEUMATOID ARTHRITIS
     Route: 065
     Dates: end: 20140507
  2. VALORON (GERMANY) [Concomitant]
  3. ALLOPURINOL. [Concomitant]
     Active Substance: ALLOPURINOL
  4. NEBIVOLOL [Concomitant]
     Active Substance: NEBIVOLOL
  5. PANTOZOL [Concomitant]
     Active Substance: PANTOPRAZOLE SODIUM
  6. NOVALGIN [Concomitant]
     Active Substance: METAMIZOLE SODIUM
  7. BUPIVACAIN [Concomitant]

REACTIONS (5)
  - Concussion [Recovered/Resolved]
  - Malaise [Unknown]
  - Nausea [Unknown]
  - Fall [Unknown]
  - Syncope [Recovered/Resolved]

NARRATIVE: CASE EVENT DATE: 20140505
